FAERS Safety Report 9800649 (Version 2)
Quarter: 2014Q1

REPORT INFORMATION
  Report Type: Spontaneous
  Country: JP (occurrence: JP)
  Receive Date: 20140107
  Receipt Date: 20140213
  Transmission Date: 20141002
  Serious: Yes (Disabling, Other)
  Sender: FDA-Public Use
  Company Number: JP-BRISTOL-MYERS SQUIBB COMPANY-19960772

PATIENT
  Age: 1 Day
  Sex: Female
  Weight: 3.04 kg

DRUGS (3)
  1. ABILIFY [Suspect]
     Route: 064
     Dates: end: 20130925
  2. APRESOLINE [Suspect]
     Dosage: 2ND DOSE:30MG DAILY,TRANSPLACENTAL?15AUG13-09OCT13,56DAYS
     Route: 064
     Dates: start: 20130411, end: 20131009
  3. MAGNESIUM OXIDE [Suspect]
     Route: 064
     Dates: start: 20130718, end: 20130801

REACTIONS (4)
  - Microphthalmos [Unknown]
  - Corneal opacity congenital [Unknown]
  - Platelet count decreased [Recovered/Resolved]
  - Hypoglycaemia [Unknown]
